FAERS Safety Report 5814419-5 (Version None)
Quarter: 2008Q3

REPORT INFORMATION
  Report Type: 
  Country: None (occurrence: None)
  Receive Date: 20080718
  Receipt Date: 20080709
  Transmission Date: 20090109
  Serious: Yes (Other)
  Sender: FDA-Public Use
  Company Number: US-BAYER-200825839NA

PATIENT
  Age: 38 Year
  Sex: Female
  Weight: 58 kg

DRUGS (9)
  1. YAZ [Suspect]
     Indication: PREMENSTRUAL SYNDROME
     Route: 048
     Dates: start: 20080117, end: 20080214
  2. YASMIN [Suspect]
     Indication: PREMENSTRUAL SYNDROME
     Route: 048
     Dates: start: 20061001, end: 20070111
  3. YASMIN [Suspect]
     Route: 048
     Dates: start: 20070101, end: 20070212
  4. YASMIN [Suspect]
     Dosage: TOTAL DAILY DOSE: 1 DF
     Route: 048
     Dates: start: 20051001
  5. ZOLOFT [Concomitant]
     Indication: UNEVALUABLE EVENT
     Route: 048
     Dates: start: 20050801, end: 20051001
  6. ZOLOFT [Concomitant]
     Route: 048
     Dates: start: 20061101, end: 20070101
  7. CELEXA [Concomitant]
     Indication: UNEVALUABLE EVENT
     Dates: start: 20071101
  8. NUVARING [Concomitant]
     Dates: start: 20060401
  9. IMITREX [Concomitant]
     Dates: end: 20070111

REACTIONS (9)
  - DIZZINESS [None]
  - DYSTONIA [None]
  - FATIGUE [None]
  - MUSCLE SPASMS [None]
  - NAUSEA [None]
  - PANIC ATTACK [None]
  - POOR QUALITY SLEEP [None]
  - SEROTONIN SYNDROME [None]
  - SYNCOPE [None]
